FAERS Safety Report 8370353-0 (Version None)
Quarter: 2012Q2

REPORT INFORMATION
  Report Type: 
  Country: None (occurrence: None)
  Receive Date: 20120518
  Receipt Date: 20110509
  Transmission Date: 20120825
  Serious: No
  Sender: FDA-Public Use
  Company Number: US-ASTRAZENECA-2011SE27754

PATIENT
  Sex: Female

DRUGS (4)
  1. BLOOD PRESSURE [Concomitant]
     Dosage: UNKNOWN
  2. CHOLESTEROL- AND TRIGLYCERIDE REDUCERS [Concomitant]
     Dosage: UNKNOWN
  3. CARDIAC THERAPY [Concomitant]
     Dosage: UNKNOWN
  4. PRILOSEC OTC [Suspect]
     Route: 048
     Dates: start: 20110506, end: 20110507

REACTIONS (3)
  - VISION BLURRED [None]
  - CHILLS [None]
  - DIZZINESS [None]
